FAERS Safety Report 25469823 (Version 1)
Quarter: 2025Q2

REPORT INFORMATION
  Report Type: Spontaneous
  Country: GB (occurrence: GB)
  Receive Date: 20250623
  Receipt Date: 20250623
  Transmission Date: 20250717
  Serious: Yes (Other)
  Sender: ELI LILLY AND COMPANY
  Company Number: GB-ELI_LILLY_AND_COMPANY-GB202506010718

PATIENT
  Age: 64 Year
  Sex: Female

DRUGS (4)
  1. MOUNJARO [Interacting]
     Active Substance: TIRZEPATIDE
     Indication: Product used for unknown indication
     Route: 065
     Dates: start: 202503
  2. MOUNJARO [Interacting]
     Active Substance: TIRZEPATIDE
     Indication: Product used for unknown indication
     Route: 065
     Dates: start: 202505
  3. PROPRANOLOL [Interacting]
     Active Substance: PROPRANOLOL HYDROCHLORIDE
     Indication: Anxiety
     Route: 065
  4. PAROXETINE [Interacting]
     Active Substance: PAROXETINE
     Indication: Anxiety
     Route: 065

REACTIONS (4)
  - Serotonin syndrome [Unknown]
  - Drug interaction [Unknown]
  - Eructation [Unknown]
  - Nausea [Unknown]

NARRATIVE: CASE EVENT DATE: 20250604
